FAERS Safety Report 9732029 (Version 1)
Quarter: 2013Q4

REPORT INFORMATION
  Report Type: Spontaneous
  Country: FR (occurrence: FR)
  Receive Date: 20131204
  Receipt Date: 20131204
  Transmission Date: 20140711
  Serious: Yes (Death)
  Sender: FDA-Public Use
  Company Number: FR-PFIZER INC-2013341505

PATIENT
  Age: 29 Year
  Sex: Female

DRUGS (3)
  1. SOLU-MEDROL [Suspect]
     Dosage: 500 MG, UNK
     Route: 042
     Dates: start: 20130826, end: 20130828
  2. CORTANCYL [Suspect]
     Dosage: 50 MG, UNK
     Route: 048
     Dates: start: 20130829
  3. CORTANCYL [Suspect]
     Dosage: 40 MG, UNK
     Route: 048
     Dates: start: 201309

REACTIONS (1)
  - Completed suicide [Fatal]
